FAERS Safety Report 20599879 (Version 1)
Quarter: 2022Q1

REPORT INFORMATION
  Report Type: Spontaneous
  Country: FR (occurrence: FR)
  Receive Date: 20220316
  Receipt Date: 20220316
  Transmission Date: 20220424
  Serious: Yes (Other)
  Sender: FDA-Public Use
  Company Number: FR-AFSSAPS-LY20221816

PATIENT
  Age: 52 Year
  Sex: Male
  Weight: 88 kg

DRUGS (5)
  1. ACYCLOVIR [Suspect]
     Active Substance: ACYCLOVIR
     Indication: Prophylaxis
     Dosage: 500 MILLIGRAM, ONCE A DAY
     Route: 042
     Dates: start: 20220113
  2. VORICONAZOLE [Suspect]
     Active Substance: VORICONAZOLE
     Indication: Aspergillus infection
     Dosage: 1400 MILLIGRAM, ONCE A DAY
     Route: 042
     Dates: start: 20220114
  3. BACTRIM [Suspect]
     Active Substance: SULFAMETHOXAZOLE\TRIMETHOPRIM
     Indication: Antifungal prophylaxis
     Dosage: 4800 MILLIGRAM, ONCE A DAY
     Route: 041
     Dates: start: 20220211
  4. BACTRIM [Suspect]
     Active Substance: SULFAMETHOXAZOLE\TRIMETHOPRIM
     Indication: Antifungal prophylaxis
     Dosage: 800 MILLIGRAM (800 MG LES MARDIS, JEUDIS ET SAMEDIS)
     Route: 048
     Dates: start: 20220207, end: 20220211
  5. BACTRIM [Suspect]
     Active Substance: SULFAMETHOXAZOLE\TRIMETHOPRIM
     Dosage: 800 MILLIGRAM, CYCLICAL (800 MG LES MARDIS, JEUDIS ET SAMEDIS)
     Route: 048
     Dates: start: 20220213, end: 20220215

REACTIONS (1)
  - Drug reaction with eosinophilia and systemic symptoms [Recovered/Resolved]

NARRATIVE: CASE EVENT DATE: 20220207
